FAERS Safety Report 4776595-5 (Version None)
Quarter: 2005Q3

REPORT INFORMATION
  Report Type: 
  Country: None (occurrence: None)
  Receive Date: 20050921
  Receipt Date: 20050909
  Transmission Date: 20060218
  Serious: Yes (Hospitalization, Other)
  Sender: FDA-Public Use
  Company Number: 2005126028

PATIENT
  Sex: Female
  Weight: 61.2356 kg

DRUGS (4)
  1. DILANTIN [Suspect]
     Indication: CONVULSION
     Dosage: (100 MG), ORAL
     Route: 048
     Dates: start: 20031101
  2. ZOCOR [Concomitant]
  3. ZETIA [Concomitant]
  4. ASPIRIN [Concomitant]

REACTIONS (9)
  - CONDITION AGGRAVATED [None]
  - CONVULSION [None]
  - FEELING ABNORMAL [None]
  - FEELING HOT [None]
  - GINGIVAL DISORDER [None]
  - GINGIVAL OEDEMA [None]
  - GLOSSODYNIA [None]
  - TENDERNESS [None]
  - TOOTH IMPACTED [None]
